FAERS Safety Report 10056906 (Version 1)
Quarter: 2014Q2

REPORT INFORMATION
  Report Type: Spontaneous
  Country: FR (occurrence: FR)
  Receive Date: 20140403
  Receipt Date: 20140403
  Transmission Date: 20141212
  Serious: Yes (Hospitalization)
  Sender: FDA-Public Use
  Company Number: FR-JNJFOC-20140317955

PATIENT
  Age: 16 Year
  Sex: Female

DRUGS (4)
  1. REMICADE [Suspect]
     Indication: CROHN^S DISEASE
     Route: 042
     Dates: start: 20131023, end: 20131023
  2. REMICADE [Suspect]
     Indication: CROHN^S DISEASE
     Route: 042
     Dates: start: 20131009
  3. SOLUPRED [Suspect]
     Indication: CROHN^S DISEASE
     Route: 048
     Dates: start: 20131023, end: 20131218
  4. SOLUPRED [Suspect]
     Indication: CROHN^S DISEASE
     Route: 048

REACTIONS (3)
  - Tuberculosis [Recovering/Resolving]
  - Infection reactivation [Recovering/Resolving]
  - Bacterial test positive [Recovering/Resolving]
